FAERS Safety Report 10665024 (Version 8)
Quarter: 2017Q3

REPORT INFORMATION
  Report Type: Report from Study
  Country: US (occurrence: US)
  Receive Date: 20141219
  Receipt Date: 20170925
  Transmission Date: 20171127
  Serious: Yes (Other)
  Sender: FDA-Public Use
  Company Number: US-SA-2014SA122941

PATIENT
  Age: 64 Year
  Sex: Female

DRUGS (8)
  1. ZANAFLEX [Concomitant]
     Active Substance: TIZANIDINE HYDROCHLORIDE
  2. AUBAGIO [Interacting]
     Active Substance: TERIFLUNOMIDE
     Indication: MULTIPLE SCLEROSIS
     Route: 048
     Dates: start: 20141216
  3. CIPROFLOXACIN. [Interacting]
     Active Substance: CIPROFLOXACIN
     Indication: URINARY TRACT INFECTION
     Route: 065
     Dates: start: 201708
  4. AUBAGIO [Suspect]
     Active Substance: TERIFLUNOMIDE
     Indication: MULTIPLE SCLEROSIS
     Route: 048
     Dates: start: 20140822, end: 20141122
  5. VITAMIN D [Concomitant]
     Active Substance: CHOLECALCIFEROL
  6. CYMBALTA [Concomitant]
     Active Substance: DULOXETINE HYDROCHLORIDE
  7. TYLENOL [Concomitant]
     Active Substance: ACETAMINOPHEN
     Indication: PAIN
     Dates: end: 20141107
  8. LISINOPRIL. [Concomitant]
     Active Substance: LISINOPRIL
     Indication: HYPERTENSION

REACTIONS (17)
  - Urinary tract infection [Not Recovered/Not Resolved]
  - White blood cell count decreased [Recovered/Resolved]
  - General physical health deterioration [Unknown]
  - Feeling hot [Not Recovered/Not Resolved]
  - Pain [Unknown]
  - Crying [Unknown]
  - Tooth abscess [Unknown]
  - Gait inability [Unknown]
  - Fall [Unknown]
  - Mobility decreased [Unknown]
  - Bedridden [Not Recovered/Not Resolved]
  - Arthralgia [Unknown]
  - Flank pain [Unknown]
  - Overweight [Unknown]
  - Unevaluable event [Unknown]
  - Drug interaction [Unknown]
  - Abnormal dreams [Recovered/Resolved]

NARRATIVE: CASE EVENT DATE: 2014
